FAERS Safety Report 5254818-6 (Version None)
Quarter: 2007Q1

REPORT INFORMATION
  Report Type: 
  Country: None (occurrence: None)
  Receive Date: 20070305
  Receipt Date: 20070220
  Transmission Date: 20070707
  Serious: Yes (Death, Life-Threatening)
  Sender: FDA-Public Use
  Company Number: TH-ELI_LILLY_AND_COMPANY-TH200702000651

PATIENT
  Age: 40 Year
  Sex: Male

DRUGS (3)
  1. OLANZAPINE [Suspect]
     Indication: AGITATION
     Route: 048
     Dates: start: 20061218, end: 20061218
  2. OLANZAPINE [Suspect]
     Dosage: 10 MG, DAILY (1/D)
     Route: 048
     Dates: start: 20061219
  3. BENZODIAZEPINE DERIVATIVES [Concomitant]

REACTIONS (2)
  - BLOOD GLUCOSE INCREASED [None]
  - SEPSIS [None]
